FAERS Safety Report 6034859-1 (Version None)
Quarter: 2009Q1

REPORT INFORMATION
  Report Type: 
  Country: None (occurrence: None)
  Receive Date: 20090108
  Receipt Date: 20090108
  Transmission Date: 20090719
  Serious: Yes (Death)
  Sender: FDA-Public Use
  Company Number: None

PATIENT
  Age: 48 Year
  Sex: Female
  Weight: 124.7392 kg

DRUGS (3)
  1. TAXOTERE [Suspect]
     Indication: LUNG CANCER METASTATIC
     Dosage: 170 MG ONCE IV DRIP
     Route: 041
     Dates: start: 20081208, end: 20081208
  2. ZOFRAN [Concomitant]
  3. DECADRON [Concomitant]

REACTIONS (3)
  - ABDOMINAL PAIN UPPER [None]
  - TRAUMATIC BRAIN INJURY [None]
  - VENTRICULAR TACHYCARDIA [None]
